FAERS Safety Report 12568464 (Version 4)
Quarter: 2017Q1

REPORT INFORMATION
  Report Type: Spontaneous
  Country: PT (occurrence: PT)
  Receive Date: 20160718
  Receipt Date: 20170201
  Transmission Date: 20170428
  Serious: Yes (Hospitalization)
  Sender: FDA-Public Use
  Company Number: PT-BIOGEN-2016BI00264625

PATIENT
  Age: 44 Year
  Sex: Female

DRUGS (7)
  1. TECFIDERA [Suspect]
     Active Substance: DIMETHYL FUMARATE
     Indication: MULTIPLE SCLEROSIS
     Dosage: MAINTENANCE DOSE
     Route: 048
     Dates: start: 20151215, end: 2016
  2. LIORESAL [Concomitant]
     Active Substance: BACLOFEN
     Dosage: AUMENTOU DOSE PARA 75 MG AO DIA.
     Route: 048
     Dates: start: 2014
  3. LIORESAL [Concomitant]
     Active Substance: BACLOFEN
     Indication: MUSCLE SPASTICITY
     Route: 048
     Dates: start: 2014
  4. BACLOFEN. [Concomitant]
     Active Substance: BACLOFEN
     Indication: MUSCLE SPASTICITY
     Route: 065
     Dates: start: 2014
  5. ESCITALOPRAM [Concomitant]
     Active Substance: ESCITALOPRAM OXALATE
     Indication: DEPRESSED MOOD
     Route: 065
     Dates: start: 2014
  6. OMEPRAZOLE. [Concomitant]
     Active Substance: OMEPRAZOLE
     Indication: PROPHYLAXIS AGAINST GASTROINTESTINAL ULCER
     Route: 048
     Dates: start: 2015
  7. BACLOFEN. [Concomitant]
     Active Substance: BACLOFEN
     Indication: MUSCULAR WEAKNESS

REACTIONS (3)
  - Gastrointestinal disorder [Unknown]
  - Muscular weakness [Recovered/Resolved]
  - Drug ineffective [Unknown]

NARRATIVE: CASE EVENT DATE: 201512
